FAERS Safety Report 26168444 (Version 1)
Quarter: 2025Q4

REPORT INFORMATION
  Report Type: Spontaneous
  Country: TW (occurrence: TW)
  Receive Date: 20251217
  Receipt Date: 20251217
  Transmission Date: 20260117
  Serious: Yes (Hospitalization, Other)
  Sender: MERCK SHARP & DOHME LLC
  Company Number: TW-009507513-2361345

PATIENT
  Age: 62 Year
  Sex: Female
  Weight: 91.4 kg

DRUGS (6)
  1. DAPTOMYCIN [Suspect]
     Active Substance: DAPTOMYCIN
     Dosage: 750 MG, QD
     Route: 042
     Dates: start: 20240422, end: 20240423
  2. CEFTRIAXONE [Concomitant]
     Active Substance: CEFTRIAXONE
     Dosage: DOSE UNKNOWN
     Dates: start: 20240421, end: 20240423
  3. MEROPENEM [Concomitant]
     Active Substance: MEROPENEM
     Dosage: DOSE UNKNOWN
     Dates: start: 20240423, end: 20240423
  4. Teicod (TEICOPLANIN) [Concomitant]
     Dosage: DOSE UNKNOWN
     Dates: start: 20240423, end: 20240424
  5. Cefa (CEFAZOLIN) [Concomitant]
     Dosage: DOSE UNKNOWN
     Dates: start: 20240425
  6. Cephaxlin (Cephalexin) [Concomitant]
     Dosage: DOSE UNKNOWN
     Dates: start: 20240504, end: 20240511

REACTIONS (2)
  - Rash [Recovered/Resolved]
  - Erysipelas [Recovered/Resolved]

NARRATIVE: CASE EVENT DATE: 20240422
